FAERS Safety Report 6580052-3 (Version None)
Quarter: 2010Q1

REPORT INFORMATION
  Report Type: 
  Country: None (occurrence: None)
  Receive Date: 20100212
  Receipt Date: 20100201
  Transmission Date: 20100710
  Serious: Yes (Other)
  Sender: FDA-Public Use
  Company Number: DK-WATSON-2010-01490

PATIENT

DRUGS (1)
  1. IBUPROFEN TABLETS [Suspect]
     Indication: PAIN
     Dosage: UNK

REACTIONS (3)
  - CEREBROVASCULAR DISORDER [None]
  - MENINGITIS ASEPTIC [None]
  - PYREXIA [None]
